FAERS Safety Report 10936266 (Version 1)
Quarter: 2015Q1

REPORT INFORMATION
  Report Type: Spontaneous
  Country: US (occurrence: None)
  Receive Date: 20150320
  Receipt Date: 20150320
  Transmission Date: 20150721
  Serious: Yes (Disabling, Other)
  Sender: FDA-Public Use
  Company Number: None

PATIENT
  Age: 54 Year
  Sex: Female

DRUGS (5)
  1. STOOL SOFTENERS [Concomitant]
     Active Substance: UNSPECIFIED INGREDIENT
  2. CIPRO [Concomitant]
     Active Substance: CIPROFLOXACIN HYDROCHLORIDE
  3. PROLIA [Suspect]
     Active Substance: DENOSUMAB
     Indication: OSTEOPOROSIS
     Dosage: ONE -- GIVEN INTO/UNDER THE SKIN
     Route: 058
     Dates: start: 20140905
  4. BOOD PRESSURE MEDS [Concomitant]
  5. PROBIOTICS [Concomitant]
     Active Substance: PROBIOTICS NOS

REACTIONS (19)
  - Muscle spasms [None]
  - Irritability [None]
  - Kidney infection [None]
  - Escherichia infection [None]
  - Ear pain [None]
  - Poor quality sleep [None]
  - Ear haemorrhage [None]
  - Morganella infection [None]
  - Feeling abnormal [None]
  - Mood altered [None]
  - Hypoaesthesia [None]
  - Klebsiella infection [None]
  - Bacterial infection [None]
  - Gait disturbance [None]
  - Pain in jaw [None]
  - Confusional state [None]
  - Body temperature increased [None]
  - Paraesthesia [None]
  - Bone pain [None]

NARRATIVE: CASE EVENT DATE: 20140905
